FAERS Safety Report 5525806-7 (Version None)
Quarter: 2007Q4

REPORT INFORMATION
  Report Type: 
  Country: None (occurrence: None)
  Receive Date: 20071126
  Receipt Date: 20071119
  Transmission Date: 20080405
  Serious: Yes (Death, Hospitalization, Other)
  Sender: FDA-Public Use
  Company Number: US-BRISTOL-MYERS SQUIBB COMPANY-13987441

PATIENT
  Age: 75 Year
  Sex: Female

DRUGS (14)
  1. ABILIFY [Suspect]
     Dosage: 1/2 TABLET AT BEDTIME
     Route: 048
  2. ASPIRIN [Concomitant]
  3. BUPROPION HCL [Concomitant]
  4. COLACE [Concomitant]
  5. LEXAPRO [Concomitant]
  6. MULTI-VITAMIN [Concomitant]
  7. POTASSIUM CHLORIDE [Concomitant]
  8. PROTONIX [Concomitant]
  9. NAMENDA [Concomitant]
  10. BENZTROPINE [Concomitant]
  11. COGENTIN [Concomitant]
  12. REGLAN [Concomitant]
  13. NYSTATIN [Concomitant]
  14. BUSPAR [Concomitant]

REACTIONS (10)
  - ABASIA [None]
  - ACTIVITIES OF DAILY LIVING IMPAIRED [None]
  - ANOREXIA [None]
  - APHASIA [None]
  - DEMENTIA [None]
  - MALNUTRITION [None]
  - MEMORY IMPAIRMENT [None]
  - ODYNOPHAGIA [None]
  - OVERDOSE [None]
  - RENAL IMPAIRMENT [None]
